FAERS Safety Report 9920495 (Version 1)
Quarter: 2014Q1

REPORT INFORMATION
  Report Type: Spontaneous
  Country: US (occurrence: US)
  Receive Date: 20140224
  Receipt Date: 20140224
  Transmission Date: 20141002
  Serious: No
  Sender: FDA-Public Use
  Company Number: US-NOVEN-13US008221

PATIENT
  Age: 55 Year
  Sex: Female

DRUGS (1)
  1. MINIVELLE [Suspect]
     Indication: PRODUCT USED FOR UNKNOWN INDICATION
     Dosage: 0.05 MG/DAY, UNK
     Route: 062
     Dates: start: 2013, end: 2013

REACTIONS (4)
  - Eyelid oedema [Recovering/Resolving]
  - Rash generalised [Recovering/Resolving]
  - Skin swelling [Recovering/Resolving]
  - Drug hypersensitivity [Recovering/Resolving]
